FAERS Safety Report 6007843-1 (Version None)
Quarter: 2008Q4

REPORT INFORMATION
  Report Type: 
  Country: None (occurrence: None)
  Receive Date: 20081217
  Receipt Date: 20080702
  Transmission Date: 20090506
  Serious: No
  Sender: FDA-Public Use
  Company Number: US-ASTRAZENECA-2008UW13334

PATIENT
  Age: 57 Year
  Sex: Female
  Weight: 49.9 kg

DRUGS (9)
  1. CRESTOR [Suspect]
     Route: 048
     Dates: start: 20080501, end: 20080601
  2. CRESTOR [Suspect]
     Route: 048
     Dates: start: 20080627
  3. KLONOPIN [Concomitant]
  4. TRAMADOL HCL [Concomitant]
  5. CITALOPRAM [Concomitant]
  6. FLEXERIL [Concomitant]
  7. ESTROPIPATE [Concomitant]
  8. XANAX [Concomitant]
  9. TYLENOL (CAPLET) [Concomitant]

REACTIONS (3)
  - CHROMATURIA [None]
  - SWELLING [None]
  - URINE OUTPUT DECREASED [None]
